FAERS Safety Report 5574888-5 (Version None)
Quarter: 2007Q4

REPORT INFORMATION
  Report Type: 
  Country: None (occurrence: None)
  Receive Date: 20071227
  Receipt Date: 20071104
  Transmission Date: 20080405
  Serious: Yes (Disabling, Other)
  Sender: FDA-Public Use
  Company Number: US-PURDUE-USA_2007_0030841

PATIENT
  Sex: Female

DRUGS (5)
  1. OXYCONTIN [Suspect]
     Indication: BACK PAIN
     Dosage: UNK, SEE TEXT
     Dates: start: 19990101, end: 20020101
  2. PERCOCET [Concomitant]
     Indication: BACK PAIN
     Dosage: UNK, QID
  3. KLONOPIN [Concomitant]
  4. FLONASE [Concomitant]
  5. OXYCONTIN [Concomitant]
     Dosage: 10 UNK, UNK

REACTIONS (12)
  - ABDOMINAL PAIN UPPER [None]
  - CONSTIPATION [None]
  - DRUG DEPENDENCE [None]
  - DRUG WITHDRAWAL SYNDROME [None]
  - DRY MOUTH [None]
  - HEPATITIS C [None]
  - IMPRISONMENT [None]
  - INTENTIONAL DRUG MISUSE [None]
  - MALAISE [None]
  - NECK PAIN [None]
  - ROAD TRAFFIC ACCIDENT [None]
  - STOMACH DISCOMFORT [None]
